FAERS Safety Report 7214973-5 (Version None)
Quarter: 2011Q1

REPORT INFORMATION
  Report Type: 
  Country: None (occurrence: None)
  Receive Date: 20110107
  Receipt Date: 20100624
  Transmission Date: 20110831
  Serious: No
  Sender: FDA-Public Use
  Company Number: A0865525A

PATIENT
  Age: 71 Year
  Sex: Male

DRUGS (14)
  1. LOVAZA [Suspect]
     Dosage: 2CAP TWICE PER DAY
     Route: 048
     Dates: start: 20100401
  2. THYROID MEDICATION [Concomitant]
  3. VITAMIN D3 [Concomitant]
  4. OXYCODONE WITH APAP [Concomitant]
  5. ASCORBIC ACID [Concomitant]
  6. PROTEIN BARS [Concomitant]
  7. LEXAPRO [Concomitant]
  8. IBUPROFEN [Concomitant]
  9. STRESS FORMULA (VITAMIN SUPPLEMENT) [Concomitant]
  10. SOMA [Concomitant]
  11. PHOSPHATE [Concomitant]
  12. CHROMIUM PICOLINATE [Concomitant]
  13. Q10 [Concomitant]
  14. QUININE SULFATE [Concomitant]

REACTIONS (3)
  - SENSORY DISTURBANCE [None]
  - VOMITING [None]
  - OFF LABEL USE [None]
